FAERS Safety Report 8290029-8 (Version None)
Quarter: 2012Q2

REPORT INFORMATION
  Report Type: 
  Country: None (occurrence: None)
  Receive Date: 20120417
  Receipt Date: 20120405
  Transmission Date: 20120825
  Serious: Yes (Life-Threatening, Hospitalization)
  Sender: FDA-Public Use
  Company Number: TR-CTI_01457_2012

PATIENT
  Sex: Female

DRUGS (3)
  1. NITROFURANTOIN [Suspect]
     Indication: PROPHYLAXIS
     Dosage: 13 TABLETS ONCE
     Route: 048
     Dates: start: 20120316, end: 20120317
  2. RABEPRAZOLE SODIUM [Suspect]
     Indication: GASTRIC ULCER
     Dosage: 5 TABLETS ONCE
     Route: 048
     Dates: start: 20120316, end: 20120317
  3. SPECTRACEF [Suspect]
     Indication: ANTIBIOTIC THERAPY
     Dosage: 5 TABLETS ONCE
     Route: 048
     Dates: start: 20120316, end: 20120317

REACTIONS (2)
  - SUICIDE ATTEMPT [None]
  - TOXICITY TO VARIOUS AGENTS [None]
